FAERS Safety Report 7986324-X (Version None)
Quarter: 2011Q4

REPORT INFORMATION
  Report Type: 
  Country: None (occurrence: None)
  Receive Date: 20111216
  Receipt Date: 20110707
  Transmission Date: 20120403
  Serious: No
  Sender: FDA-Public Use
  Company Number: US-BRISTOL-MYERS SQUIBB COMPANY-15880453

PATIENT
  Age: 18 Year
  Sex: Female

DRUGS (2)
  1. CELEXA [Concomitant]
  2. ABILIFY [Suspect]
     Indication: BIPOLAR DISORDER
     Dosage: CURRENTLY TAKING 10MG

REACTIONS (3)
  - MUSCLE TWITCHING [None]
  - DRUG INEFFECTIVE [None]
  - MUSCLE SPASMS [None]
